FAERS Safety Report 13000837 (Version 1)
Quarter: 2016Q4

REPORT INFORMATION
  Report Type: Spontaneous
  Country: US (occurrence: US)
  Receive Date: 20161206
  Receipt Date: 20161206
  Transmission Date: 20170207
  Serious: Yes (Other)
  Sender: FDA-Public Use
  Company Number: US-PFIZER INC-2016499674

PATIENT
  Age: 65 Year
  Sex: Female
  Weight: 76.97 kg

DRUGS (45)
  1. ATIVAN [Concomitant]
     Active Substance: LORAZEPAM
     Indication: ANXIETY
  2. OMEGA 3 [Concomitant]
     Active Substance: OMEGA-3 FATTY ACIDS
     Dosage: 1 DF, 1X/DAY
     Route: 048
  3. 5-HYDROXYTRYPTOPHAN [Concomitant]
     Active Substance: OXITRIPTAN
     Dosage: 1 DF, 1X/DAY
     Route: 048
  4. COLACE [Concomitant]
     Active Substance: DOCUSATE SODIUM
     Dosage: 250 MG, DAILY
     Route: 048
  5. ROBAXIN [Concomitant]
     Active Substance: METHOCARBAMOL
     Indication: MUSCLE SPASMS
     Dosage: 1500 MG, AS NEEDED (THREE TIMES A DAY)
     Route: 048
  6. VITAMIN C [Concomitant]
     Active Substance: ASCORBIC ACID
     Dosage: 1000 MG, DAILY
     Route: 048
  7. HYDROXYCHLOROQUINE SULFATE. [Concomitant]
     Active Substance: HYDROXYCHLOROQUINE SULFATE
     Dosage: 400 MG, 1X/DAY
     Route: 048
  8. ZOFRAN [Concomitant]
     Active Substance: ONDANSETRON HYDROCHLORIDE
     Dosage: 8 MG, 3X/DAY AS NEEDED
     Route: 048
  9. CURCUMA LONGA ROOT [Concomitant]
     Dosage: 2 DF, 1X/DAY (TABLETS BY MOUTH EVERY DAY)
     Route: 048
  10. LIDOCAINE W/PRILOCAINE [Concomitant]
     Dosage: APPLY TO AFFECTED AREA
     Route: 061
  11. PRILOSEC [Concomitant]
     Active Substance: OMEPRAZOLE MAGNESIUM
     Dosage: 20 MG, 1X/DAY
     Route: 048
  12. HEPARIN PF [Concomitant]
     Indication: FLUSHING
     Dosage: 5 ML, AS NEEDED
     Route: 042
  13. CIPROFLOXACIN HCL [Concomitant]
     Active Substance: CIPROFLOXACIN HYDROCHLORIDE
  14. ATIVAN [Concomitant]
     Active Substance: LORAZEPAM
     Indication: AGITATION
     Dosage: 1 MG, AS NEEDED (TWICE A DAY )
     Route: 048
  15. FLAXSEED [Concomitant]
     Active Substance: FLAX SEED
     Dosage: 1 DF, 1X/DAY
     Route: 048
  16. FEMARA [Concomitant]
     Active Substance: LETROZOLE
     Dosage: 2.5 MG, 1X/DAY
     Route: 048
  17. COUMADIN [Concomitant]
     Active Substance: WARFARIN SODIUM
     Dosage: 5 MG, DAILY
     Route: 048
  18. OXYCONTIN [Concomitant]
     Active Substance: OXYCODONE HYDROCHLORIDE
     Dosage: 20 MG, 1X/DAY (AT BEDTIME)
     Route: 048
  19. VICODIN HP [Concomitant]
     Active Substance: ACETAMINOPHEN\HYDROCODONE BITARTRATE
     Indication: PAIN
     Dosage: 1 DF, AS NEEDED (HYDROCODONE BITARTRATE-10 MG/PARACETAMOL-300 MG) (EVERY FOUR HOURS)
     Route: 048
  20. LIDOCAINE. [Concomitant]
     Active Substance: LIDOCAINE
     Indication: SUPPORTIVE CARE
     Dosage: 0.3 ML, AS NEEDED (BUFFERED)
     Route: 023
  21. IBRANCE [Suspect]
     Active Substance: PALBOCICLIB
     Indication: BREAST CANCER FEMALE
     Dosage: 100 MG, CYCLIC (28 DAYS 1-21 OF EACH 28 DAY CYCLE)
  22. SYNTHROID [Concomitant]
     Active Substance: LEVOTHYROXINE SODIUM
     Dosage: 112 UG, 1X/DAY
     Route: 048
  23. BUMETANIDE. [Concomitant]
     Active Substance: BUMETANIDE
     Dosage: 0.5 MG, 1X/DAY
     Route: 048
  24. MAGNESIUM [Concomitant]
     Active Substance: MAGNESIUM
     Dosage: 250 MG, UNK
     Route: 048
  25. PROBIOTIC [Concomitant]
     Active Substance: PROBIOTICS NOS
     Dosage: 1 DF, 1X/DAY
     Route: 048
  26. LACTOBACILLUS ACIDOPHILUS [Concomitant]
     Active Substance: LACTOBACILLUS ACIDOPHILUS
  27. ALTEPLASE [Concomitant]
     Active Substance: ALTEPLASE
     Dosage: AS NEEDED ((PRN IMPLATED PORT OCCLUSION.MAY REPEAT X1,STARTING WHEN RELEASED, 2 MG, 1 IN 1 AS REQ
     Route: 042
  28. POTASSIUM CHLORIDE. [Concomitant]
     Active Substance: POTASSIUM CHLORIDE
     Dosage: 10 MEQ, AS NEEDED (ONCE EVERY DAY (WHEN TAKING DIURETIC))
     Route: 048
  29. OXYCODONE [Concomitant]
     Active Substance: OXYCODONE
     Indication: PAIN
     Dosage: 10 MG, AS NEEDED (AT BEDTIME (TAKE 1-2 TABLETS)
     Route: 048
  30. HEPARIN PF [Concomitant]
     Indication: FLUSHING
  31. ALTEPLASE [Concomitant]
     Active Substance: ALTEPLASE
     Dosage: 2 MG, AS NEEDED (AKA CATHFLO; PRN IMPLATED PORT OCCLUSION. MAY REPEAT X1, STARTING WHEN RELEASED)
     Route: 042
  32. ANCEF [Concomitant]
     Active Substance: CEFAZOLIN SODIUM
  33. COQ10 [Concomitant]
     Active Substance: UBIDECARENONE
     Dosage: 1 DF, 1X/DAY
     Route: 048
  34. SELENIUM [Concomitant]
     Active Substance: SELENIUM
     Dosage: UNK
     Route: 048
  35. CATHFLO ACTIVASE [Concomitant]
     Active Substance: ALTEPLASE
     Dosage: 2 MG, AS NEEDED
     Route: 042
  36. VENTOLIN HFA [Concomitant]
     Active Substance: ALBUTEROL SULFATE
     Dosage: 2 DF, AS NEEDED (EVERY SIX HOURS) (90 MCG/ACT)
     Route: 055
  37. COPPER [Concomitant]
     Active Substance: COPPER
     Dosage: UNK
     Route: 048
  38. MIRALAX [Concomitant]
     Active Substance: POLYETHYLENE GLYCOL 3350
     Dosage: 17 G, 1X/DAY
     Route: 048
  39. DELTASONE [Concomitant]
     Active Substance: PREDNISONE
     Dosage: 15 MG, 1X/DAY (EVERY MORNING WITH BREAKFAST)
     Route: 048
  40. CITRACAL [Concomitant]
     Active Substance: CALCIUM CITRATE
     Dosage: 830 MG, 1X/DAY
     Route: 048
  41. HEPARIN SODIUM. [Suspect]
     Active Substance: HEPARIN SODIUM
     Indication: NEOPLASM MALIGNANT
     Dosage: UNK
  42. ATIVAN [Concomitant]
     Active Substance: LORAZEPAM
     Indication: NAUSEA
  43. UBIQUINOL [Concomitant]
     Active Substance: UBIQUINOL
     Dosage: 1 DF, 1X/DAY
     Route: 048
  44. VITAMIN D3 [Concomitant]
     Active Substance: CHOLECALCIFEROL
     Dosage: 10000 IU, 1X/DAY
     Route: 048
  45. HEPARIN PF [Concomitant]
     Indication: CATHETER MANAGEMENT
     Dosage: 3 ML, AS NEEDED
     Route: 042

REACTIONS (3)
  - Hypergammaglobulinaemia benign monoclonal [Unknown]
  - Second primary malignancy [Unknown]
  - Neoplasm progression [Unknown]
